FAERS Safety Report 14661417 (Version 3)
Quarter: 2018Q1

REPORT INFORMATION
  Report Type: Spontaneous
  Country: JP (occurrence: JP)
  Receive Date: 20180320
  Receipt Date: 20180329
  Transmission Date: 20180509
  Serious: Yes (Death, Other)
  Sender: FDA-Public Use
  Company Number: JP-ABBVIE-18S-087-2291882-00

PATIENT
  Age: 61 Year
  Sex: Male

DRUGS (3)
  1. NORVIR [Suspect]
     Active Substance: RITONAVIR
     Indication: HIV INFECTION
     Route: 048
  2. DARUNAVIR ETHANOLATE. [Concomitant]
     Active Substance: DARUNAVIR ETHANOLATE
     Indication: HIV INFECTION
     Route: 048
  3. ABACAVIR SULFATE W/LAMIVUDINE [Concomitant]
     Active Substance: ABACAVIR\LAMIVUDINE
     Indication: HIV INFECTION
     Route: 048

REACTIONS (5)
  - Oropharyngeal cancer [Fatal]
  - Mucosal inflammation [Unknown]
  - Neutrophil count decreased [Unknown]
  - Dermatitis [Unknown]
  - Osteonecrosis [Unknown]
